FAERS Safety Report 11022965 (Version 2)
Quarter: 2015Q2

REPORT INFORMATION
  Report Type: Spontaneous
  Country: US (occurrence: US)
  Receive Date: 20150413
  Receipt Date: 20150413
  Transmission Date: 20150821
  Serious: No
  Sender: FDA-Public Use
  Company Number: US-ASTELLAS-2014US007005

PATIENT
  Age: 50 Year
  Sex: Female

DRUGS (2)
  1. PROTOPIC [Suspect]
     Active Substance: TACROLIMUS
     Indication: ORAL DISCOMFORT
     Dosage: 0.1 %, TWO TO THREE TIMES DAILY
     Route: 065
     Dates: start: 2014
  2. PROTOPIC [Suspect]
     Active Substance: TACROLIMUS
     Indication: LIP EXFOLIATION

REACTIONS (5)
  - Burning sensation [Unknown]
  - Product use issue [Unknown]
  - Condition aggravated [Recovered/Resolved]
  - Erythema [Unknown]
  - Paraesthesia [Unknown]

NARRATIVE: CASE EVENT DATE: 2014
